FAERS Safety Report 10082786 (Version 1)
Quarter: 2014Q2

REPORT INFORMATION
  Report Type: Spontaneous
  Country: US (occurrence: US)
  Receive Date: 20140416
  Receipt Date: 20140416
  Transmission Date: 20141212
  Serious: No
  Sender: FDA-Public Use
  Company Number: US-GILEAD-2014-0099724

PATIENT
  Age: 58 Year
  Sex: Male

DRUGS (3)
  1. LETAIRIS [Suspect]
     Indication: PULMONARY HYPERTENSION
     Dosage: 10 MG, QD
     Route: 065
     Dates: start: 20140308
  2. METOLAZONE [Concomitant]
  3. LASIX                              /00032601/ [Concomitant]

REACTIONS (1)
  - Fluid retention [Not Recovered/Not Resolved]
